FAERS Safety Report 5421077-0 (Version None)
Quarter: 2007Q3

REPORT INFORMATION
  Report Type: 
  Country: None (occurrence: None)
  Receive Date: 20070821
  Receipt Date: 20070814
  Transmission Date: 20080115
  Serious: Yes (Other)
  Sender: FDA-Public Use
  Company Number: D0053953A

PATIENT
  Age: 48 Year
  Sex: Male
  Weight: 84 kg

DRUGS (2)
  1. SEROXAT [Suspect]
     Indication: OBSESSIVE-COMPULSIVE DISORDER
     Dosage: 40MG PER DAY
     Route: 048
     Dates: start: 20040101
  2. SEROQUEL [Concomitant]
     Dosage: 150MG PER DAY
     Route: 048
     Dates: start: 20031201

REACTIONS (1)
  - PEMPHIGOID [None]
